FAERS Safety Report 9557079 (Version 1)
Quarter: 2013Q3

REPORT INFORMATION
  Report Type: Spontaneous
  Country: US (occurrence: None)
  Receive Date: 20130724
  Receipt Date: 20130724
  Transmission Date: 20140515
  Serious: Yes (Other)
  Sender: FDA-Public Use
  Company Number: PHEH2013US001568

PATIENT
  Age: 55 Year
  Sex: Female
  Weight: 78.9 kg

DRUGS (15)
  1. GILENYA [Suspect]
     Indication: MULTIPLE SCLEROSIS
     Route: 048
     Dates: start: 201208
  2. AMANTADINE (AMANTADINE) [Concomitant]
  3. AMITIZA (LUBIPROSTONE) [Concomitant]
  4. BACLOFEN (BACLOFEN) [Concomitant]
  5. CLONAZEPAM (CLONAZEPAM) [Concomitant]
  6. GABAPENTIN (GABAPENTIN) [Concomitant]
  7. LORTAB (HYDROCODONE BITARTRATE, PARACETAMOL) [Concomitant]
  8. PRAVASTATIN (PRAVASTATIN) [Concomitant]
  9. PRILOSEC [Concomitant]
  10. PRISTIQ (DESVENLAFAXINE SUCCINATE) [Concomitant]
  11. LEXAPRO (ESCITALOPRAM OXALATE) [Concomitant]
  12. SENNA (SENNA ALEXANDRINA) [Concomitant]
  13. SYNTHROID (LEVOTHYROXINE SODIUM) [Concomitant]
  14. TRAZODONE (TRAZODONE) [Concomitant]
  15. VISTARIL (HYDROXYZINE EMBONATE) [Concomitant]

REACTIONS (2)
  - White blood cell count decreased [None]
  - Lymphocyte count decreased [None]
